FAERS Safety Report 15563488 (Version 5)
Quarter: 2020Q2

REPORT INFORMATION
  Report Type: Spontaneous
  Country: PT (occurrence: PT)
  Receive Date: 20181029
  Receipt Date: 20200627
  Transmission Date: 20200713
  Serious: Yes (Other)
  Sender: FDA-Public Use
  Company Number: PHHY2018PT138219

PATIENT
  Age: 7 Year

DRUGS (1)
  1. METHYLPHENIDATE HYDROCHLORIDE. [Suspect]
     Active Substance: METHYLPHENIDATE HYDROCHLORIDE
     Indication: ATTENTION DEFICIT HYPERACTIVITY DISORDER
     Dosage: 1.2 MG/KG, QD
     Route: 065

REACTIONS (5)
  - Rebound effect [Unknown]
  - Tic [Unknown]
  - Apathy [Unknown]
  - Epilepsy [Unknown]
  - Decreased appetite [Unknown]
